FAERS Safety Report 8128623-7 (Version None)
Quarter: 2011Q4

REPORT INFORMATION
  Report Type: 
  Country: None (occurrence: None)
  Receive Date: 20111227
  Receipt Date: 20111020
  Transmission Date: 20120403
  Serious: No
  Sender: FDA-Public Use
  Company Number: PHEH2011US07557

PATIENT
  Sex: Female

DRUGS (10)
  1. GILENYA [Suspect]
     Dosage: 0.5 MG, QD, ORAL
     Route: 048
  2. FIBER (POLYCARBOPHIL CALCIUM) [Concomitant]
  3. CYMBALTA [Concomitant]
  4. OXYCONTIN [Concomitant]
  5. XANAX [Concomitant]
  6. STOOL SOFTENER (DOCUSATE SODIUM) [Concomitant]
  7. SOMA [Concomitant]
  8. SYNTHROID [Concomitant]
  9. DEPLIN (CALCIUM L-MEHTYLFOATE) [Concomitant]
  10. ROXICODONE [Concomitant]

REACTIONS (1)
  - CONSTIPATION [None]
